APPROVED DRUG PRODUCT: CLONIDINE HYDROCHLORIDE
Active Ingredient: CLONIDINE HYDROCHLORIDE
Strength: 0.1MG
Dosage Form/Route: TABLET, EXTENDED RELEASE;ORAL
Application: A210052 | Product #001
Applicant: AMNEAL PHARMACEUTICALS OF NY LLC
Approved: Nov 20, 2017 | RLD: No | RS: No | Type: DISCN